FAERS Safety Report 5214306-X (Version None)
Quarter: 2007Q1

REPORT INFORMATION
  Report Type: 
  Country: None (occurrence: None)
  Receive Date: 20070122
  Receipt Date: 20070110
  Transmission Date: 20070707
  Serious: Yes (Death)
  Sender: FDA-Public Use
  Company Number: IS-MERCK-0701USA02368

PATIENT
  Age: 46 Year
  Sex: Female

DRUGS (3)
  1. CANCIDAS [Suspect]
     Indication: ASPERGILLOSIS
     Route: 065
  2. VORICONAZOLE [Concomitant]
     Route: 065
  3. AMPHOTERICIN B [Concomitant]
     Route: 065

REACTIONS (2)
  - ASPERGILLOSIS [None]
  - DRUG INEFFECTIVE [None]
